APPROVED DRUG PRODUCT: GLYBURIDE
Active Ingredient: GLYBURIDE
Strength: 2.5MG
Dosage Form/Route: TABLET;ORAL
Application: A074388 | Product #002 | TE Code: AB1
Applicant: TEVA PHARMACEUTICALS USA INC
Approved: Aug 29, 1995 | RLD: No | RS: No | Type: RX